FAERS Safety Report 7805563-1 (Version None)
Quarter: 2011Q4

REPORT INFORMATION
  Report Type: 
  Country: None (occurrence: None)
  Receive Date: 20111010
  Receipt Date: 20111005
  Transmission Date: 20120403
  Serious: Yes (Hospitalization)
  Sender: FDA-Public Use
  Company Number: US-MERCK-1109USA02540

PATIENT
  Age: 69 Year
  Sex: Female

DRUGS (2)
  1. JANUMET [Suspect]
     Dosage: 50-1000
     Route: 048
     Dates: start: 20110201, end: 20110501
  2. METFORMIN [Concomitant]
     Dosage: 500 AT NIGHT
     Route: 065
     Dates: start: 20110501

REACTIONS (16)
  - TREMOR [None]
  - VITAMIN D DECREASED [None]
  - DIZZINESS [None]
  - MALAISE [None]
  - VOMITING [None]
  - WEIGHT DECREASED [None]
  - BLOOD MAGNESIUM DECREASED [None]
  - DECREASED APPETITE [None]
  - WHITE BLOOD CELL COUNT INCREASED [None]
  - CYSTITIS [None]
  - BLOOD CALCIUM DECREASED [None]
  - DEHYDRATION [None]
  - BLOOD POTASSIUM DECREASED [None]
  - POLYMYALGIA RHEUMATICA [None]
  - NAUSEA [None]
  - VITAMIN B12 DECREASED [None]
